FAERS Safety Report 21950567 (Version 2)
Quarter: 2023Q1

REPORT INFORMATION
  Report Type: Spontaneous
  Country: US (occurrence: US)
  Receive Date: 20230203
  Receipt Date: 20230207
  Transmission Date: 20230418
  Serious: Yes (Life-Threatening, Hospitalization, Other)
  Sender: FDA-Public Use
  Company Number: US-MLMSERVICE-20230125-4055429-1

PATIENT
  Age: 4 Year
  Sex: Female

DRUGS (10)
  1. METHOTREXATE SODIUM [Suspect]
     Active Substance: METHOTREXATE SODIUM
     Indication: Trisomy 21
     Dosage: MAINTENANCE CYCLE 4
  2. METHOTREXATE SODIUM [Suspect]
     Active Substance: METHOTREXATE SODIUM
     Indication: Acute lymphocytic leukaemia
     Dosage: UNK
     Route: 037
  3. VINCRISTINE [Concomitant]
     Active Substance: VINCRISTINE
     Indication: Trisomy 21
     Dosage: UNK
     Route: 042
  4. VINCRISTINE [Concomitant]
     Active Substance: VINCRISTINE
     Indication: Acute lymphocytic leukaemia
     Dosage: MAINTENANCE CYCLE 4
  5. DEXAMETHASONE [Concomitant]
     Active Substance: DEXAMETHASONE
     Indication: Acute lymphocytic leukaemia
     Dosage: UNK
     Route: 048
  6. DEXAMETHASONE [Concomitant]
     Active Substance: DEXAMETHASONE
     Indication: Trisomy 21
     Dosage: MAINTENANCE CYCLE 4
  7. MERCAPTOPURINE [Concomitant]
     Active Substance: MERCAPTOPURINE
     Indication: Trisomy 21
     Dosage: UNK
     Route: 048
  8. MERCAPTOPURINE [Concomitant]
     Active Substance: MERCAPTOPURINE
     Indication: Acute lymphocytic leukaemia
  9. LEUCOVORIN [Concomitant]
     Active Substance: LEUCOVORIN
     Indication: Trisomy 21
     Dosage: UNK
  10. LEUCOVORIN [Concomitant]
     Active Substance: LEUCOVORIN
     Indication: Acute lymphocytic leukaemia

REACTIONS (1)
  - Leukoencephalopathy [Unknown]
